FAERS Safety Report 8999671 (Version 1)
Quarter: 2013Q1

REPORT INFORMATION
  Report Type: Report from Study
  Country: GB (occurrence: GB)
  Receive Date: 20130102
  Receipt Date: 20130102
  Transmission Date: 20140127
  Serious: Yes (Hospitalization)
  Sender: FDA-Public Use
  Company Number: GB-GLAXOSMITHKLINE-B0853550A

PATIENT
  Age: 84 Year
  Sex: Male

DRUGS (10)
  1. OFATUMUMAB [Suspect]
     Indication: CHRONIC LYMPHOCYTIC LEUKAEMIA
     Dosage: 300MG SINGLE DOSE
     Route: 042
     Dates: start: 20121203, end: 20121203
  2. CHLORAMBUCIL [Suspect]
     Indication: CHRONIC LYMPHOCYTIC LEUKAEMIA
     Dosage: 126MG PER DAY
     Route: 048
     Dates: start: 20121204, end: 20121210
  3. OFATUMUMAB [Suspect]
     Indication: CHRONIC LYMPHOCYTIC LEUKAEMIA
     Dosage: 1000MG SINGLE DOSE
     Route: 042
     Dates: start: 20121211, end: 20121211
  4. PARACETAMOL [Concomitant]
     Dates: start: 20121203, end: 20121203
  5. CHLORPHENIRAMINE [Concomitant]
     Dosage: 4MG PER DAY
     Dates: start: 20121203, end: 20121203
  6. PREDNISOLONE [Concomitant]
     Dosage: 20MG PER DAY
     Dates: start: 20121210, end: 20121210
  7. ALLOPURINOL [Concomitant]
     Dosage: 300MG PER DAY
     Dates: start: 20121204, end: 20121210
  8. METOCLOPRAMIDE [Concomitant]
     Dosage: 10MG PER DAY
     Dates: start: 20121004
  9. ACICLOVIR [Concomitant]
     Dosage: 400MG PER DAY
     Dates: start: 20121204
  10. GCSF [Concomitant]

REACTIONS (1)
  - Febrile neutropenia [Recovered/Resolved]
